FAERS Safety Report 8905605 (Version 5)
Quarter: 2013Q2

REPORT INFORMATION
  Report Type: Spontaneous
  Country: US (occurrence: US)
  Receive Date: 20121113
  Receipt Date: 20130411
  Transmission Date: 20140414
  Serious: Yes (Hospitalization, Disabling, Other)
  Sender: FDA-Public Use
  Company Number: US-009507513-1202USA04362

PATIENT
  Sex: Female

DRUGS (5)
  1. FOSAMAX [Suspect]
     Indication: OSTEOPOROSIS PROPHYLAXIS
     Dosage: 70 MG, QW
     Route: 048
     Dates: start: 20030524, end: 20080410
  2. ALENDRONATE SODIUM [Suspect]
     Indication: OSTEOPOROSIS PROPHYLAXIS
     Dosage: 70 MG, QW
     Route: 048
     Dates: start: 20080410, end: 20080714
  3. VITAMINS (UNSPECIFIED) [Concomitant]
     Indication: ROUTINE HEALTH MAINTENANCE
     Dosage: 1 DF, UNK
     Route: 048
     Dates: start: 1950
  4. GLUCOSAMINE [Concomitant]
     Indication: ROUTINE HEALTH MAINTENANCE
     Dosage: 500 MG, QD
     Route: 048
     Dates: start: 1950
  5. CHONDROITIN [Concomitant]
     Indication: ROUTINE HEALTH MAINTENANCE
     Dosage: 400 MG, QD
     Route: 048
     Dates: start: 1950

REACTIONS (16)
  - Femur fracture [Recovering/Resolving]
  - Open reduction of fracture [Unknown]
  - Fall [Unknown]
  - Cholecystectomy [Unknown]
  - Arthritis [Unknown]
  - Rotator cuff syndrome [Not Recovered/Not Resolved]
  - Hypertension [Unknown]
  - Blood cholesterol increased [Unknown]
  - Fall [Unknown]
  - Osteoporosis [Unknown]
  - Hiatus hernia [Unknown]
  - Peptic ulcer [Unknown]
  - Radiculopathy [Unknown]
  - Neuropathy peripheral [Unknown]
  - Gastritis [Unknown]
  - Gastrooesophageal reflux disease [Unknown]
